FAERS Safety Report 6642948-3 (Version None)
Quarter: 2010Q1

REPORT INFORMATION
  Report Type: 
  Country: None (occurrence: None)
  Receive Date: 20100319
  Receipt Date: 20100315
  Transmission Date: 20100710
  Serious: Yes (Death)
  Sender: FDA-Public Use
  Company Number: CA-CELGENEUS-028-21880-10011485

PATIENT
  Age: 50 Year
  Sex: Female

DRUGS (2)
  1. REVLIMID [Suspect]
     Indication: AMYLOIDOSIS
     Route: 048
  2. REVLIMID [Suspect]

REACTIONS (3)
  - ARRHYTHMIA [None]
  - DISEASE PROGRESSION [None]
  - SUDDEN DEATH [None]
